FAERS Safety Report 9796957 (Version 1)
Quarter: 2014Q1

REPORT INFORMATION
  Report Type: Spontaneous
  Country: US (occurrence: US)
  Receive Date: 20140105
  Receipt Date: 20140105
  Transmission Date: 20141002
  Serious: No
  Sender: FDA-Public Use
  Company Number: US-009507513-1401USA000829

PATIENT
  Age: 33 Year
  Sex: Female

DRUGS (4)
  1. CLARITIN-D [Suspect]
     Indication: MALAISE
     Dosage: UNK, UNKNOWN
     Route: 048
  2. CLARITIN-D [Suspect]
     Indication: NASOPHARYNGITIS
  3. CLARITIN-D [Suspect]
     Indication: OROPHARYNGEAL PAIN
  4. CLARITIN-D [Suspect]
     Indication: COUGH

REACTIONS (4)
  - Bronchitis [Unknown]
  - Cough [Unknown]
  - Fatigue [Unknown]
  - Drug effect decreased [Unknown]
